FAERS Safety Report 4289191-3 (Version None)
Quarter: 2004Q1

REPORT INFORMATION
  Report Type: 
  Country: None (occurrence: None)
  Receive Date: 20040209
  Receipt Date: 20040209
  Transmission Date: 20041129
  Serious: Yes (Hospitalization, Disabling)
  Sender: FDA-Public Use
  Company Number: None

PATIENT
  Sex: Female
  Weight: 68.0396 kg

DRUGS (1)
  1. PAXIL [Suspect]
     Indication: DEPRESSION
     Dates: start: 20020201, end: 20030825

REACTIONS (4)
  - CONVULSION [None]
  - DRUG INTERACTION [None]
  - MOVEMENT DISORDER [None]
  - TREMOR [None]
